FAERS Safety Report 5903888-8 (Version None)
Quarter: 2008Q3

REPORT INFORMATION
  Report Type: 
  Country: None (occurrence: None)
  Receive Date: 20080919
  Receipt Date: 20080617
  Transmission Date: 20090109
  Serious: No
  Sender: FDA-Public Use
  Company Number: US-WYE-H04560808

PATIENT
  Age: 46 Year
  Sex: Female

DRUGS (5)
  1. PRISTIQ [Suspect]
     Indication: DEPRESSION
     Dosage: 50 MG 1X PER 1 DAY, ORAL
     Route: 048
     Dates: start: 20080615
  2. LORCET-HD [Concomitant]
  3. NEXIUM [Concomitant]
  4. XANAX [Concomitant]
  5. MOBIC [Concomitant]

REACTIONS (1)
  - FATIGUE [None]
